FAERS Safety Report 17510654 (Version 1)
Quarter: 2020Q1

REPORT INFORMATION
  Report Type: Spontaneous
  Country: SE (occurrence: SE)
  Receive Date: 20200306
  Receipt Date: 20200306
  Transmission Date: 20200409
  Serious: Yes (Death)
  Sender: FDA-Public Use
  Company Number: SE-TEVA-2020-SE-1195555

PATIENT
  Age: 74 Year
  Sex: Male
  Weight: 85 kg

DRUGS (6)
  1. RISPERIDONE. [Suspect]
     Active Substance: RISPERIDONE
     Indication: HALLUCINATION
     Dosage: 2 MG 1 DAYS
     Dates: start: 20200106, end: 20200123
  2. MEMANTINE. [Concomitant]
     Active Substance: MEMANTINE
  3. BEHEPAN [Concomitant]
  4. LOSARTAN. [Concomitant]
     Active Substance: LOSARTAN
  5. FOLACIN [Concomitant]
  6. INDERAL [Concomitant]
     Active Substance: PROPRANOLOL HYDROCHLORIDE

REACTIONS (11)
  - Hallucination [Fatal]
  - Pyrexia [Fatal]
  - Glassy eyes [Fatal]
  - Cognitive disorder [Fatal]
  - Dysarthria [Fatal]
  - Dysphagia [Fatal]
  - Oxygen saturation decreased [Fatal]
  - Restlessness [Fatal]
  - Fall [Fatal]
  - Pneumonia aspiration [Fatal]
  - Depressed level of consciousness [Fatal]

NARRATIVE: CASE EVENT DATE: 202001
